FAERS Safety Report 7750026-5 (Version None)
Quarter: 2011Q3

REPORT INFORMATION
  Report Type: 
  Country: None (occurrence: None)
  Receive Date: 20110825
  Receipt Date: 20110630
  Transmission Date: 20111222
  Serious: No
  Sender: FDA-Public Use
  Company Number: 331179

PATIENT
  Age: 47 Year
  Sex: Male

DRUGS (2)
  1. VICTOZA [Suspect]
     Indication: TYPE 2 DIABETES MELLITUS
     Dosage: SUBCUTANEOUS; SUBCUTANEOUS
     Route: 058
     Dates: start: 20110601
  2. VICTOZA [Suspect]
     Indication: TYPE 2 DIABETES MELLITUS
     Dosage: SUBCUTANEOUS; SUBCUTANEOUS
     Route: 058
     Dates: start: 20100801

REACTIONS (2)
  - VOMITING [None]
  - NAUSEA [None]
